FAERS Safety Report 21933798 (Version 1)
Quarter: 2023Q1

REPORT INFORMATION
  Report Type: Spontaneous
  Country: JP (occurrence: JP)
  Receive Date: 20230201
  Receipt Date: 20230201
  Transmission Date: 20230417
  Serious: Yes (Other)
  Sender: FDA-Public Use
  Company Number: JP-CHUGAI-2023002343

PATIENT
  Sex: Female

DRUGS (3)
  1. ACTEMRA [Suspect]
     Active Substance: TOCILIZUMAB
     Indication: Rheumatoid arthritis
     Dosage: 162 MILLIGRAM, ONCE/2WEEKS
     Route: 058
  2. METHOTREXATE [Suspect]
     Active Substance: METHOTREXATE
     Indication: Product used for unknown indication
     Dosage: 8 MILLIGRAM, ONCE/WEEK
     Route: 048
     Dates: end: 202211
  3. METHOTREXATE [Suspect]
     Active Substance: METHOTREXATE
     Dosage: 4 MILLIGRAM, ONCE/WEEK
     Route: 048
     Dates: start: 202211

REACTIONS (1)
  - Neuromyelitis optica spectrum disorder [Unknown]
